FAERS Safety Report 26066340 (Version 1)
Quarter: 2025Q4

REPORT INFORMATION
  Report Type: Spontaneous
  Country: US (occurrence: US)
  Receive Date: 20251119
  Receipt Date: 20251119
  Transmission Date: 20260118
  Serious: Yes (Hospitalization)
  Sender: BRISTOL-MYERS SQUIBB COMPANY
  Company Number: US-BRISTOL-MYERS SQUIBB COMPANY-2025-156739

PATIENT
  Age: 66 Year
  Sex: Female
  Weight: 99.79 kg

DRUGS (1)
  1. ELIQUIS [Suspect]
     Active Substance: APIXABAN
     Indication: Anticoagulant therapy
     Route: 048

REACTIONS (4)
  - Emotional distress [Unknown]
  - Product packaging issue [Unknown]
  - Chest pain [Unknown]
  - Off label use [Unknown]
